FAERS Safety Report 5954718-X (Version None)
Quarter: 2008Q4

REPORT INFORMATION
  Report Type: 
  Country: None (occurrence: None)
  Receive Date: 20081117
  Receipt Date: 20081107
  Transmission Date: 20090506
  Serious: Yes (Hospitalization, Other)
  Sender: FDA-Public Use
  Company Number: PHHY2008BE27429

PATIENT

DRUGS (3)
  1. LEPONEX [Suspect]
     Indication: SCHIZOPHRENIA
     Dosage: 300 MG DAILY
  2. LEPONEX [Suspect]
     Dosage: 250 MG DAILY
  3. BENZODIAZEPINES [Concomitant]
     Dosage: UNK

REACTIONS (11)
  - ATONIC URINARY BLADDER [None]
  - CEREBRAL DISORDER [None]
  - GAIT DISTURBANCE [None]
  - HYDRONEPHROSIS [None]
  - MENINGITIS [None]
  - NUCLEAR MAGNETIC RESONANCE IMAGING ABNORMAL [None]
  - POLYNEUROPATHY [None]
  - SARCOIDOSIS [None]
  - SEPSIS [None]
  - SPINAL CORD DISORDER [None]
  - SYSTEMIC LUPUS ERYTHEMATOSUS [None]
